FAERS Safety Report 9974805 (Version 1)
Quarter: 2014Q1

REPORT INFORMATION
  Report Type: Report from Study
  Country: US (occurrence: US)
  Receive Date: 20140306
  Receipt Date: 20140306
  Transmission Date: 20141002
  Serious: No
  Sender: FDA-Public Use
  Company Number: US-ABBVIE-13P-163-1159272-00

PATIENT
  Age: 55 Year
  Sex: Female

DRUGS (6)
  1. HUMIRA [Suspect]
     Indication: RHEUMATOID ARTHRITIS
     Dates: start: 20130916
  2. METHOTREXATE [Concomitant]
     Indication: RHEUMATOID ARTHRITIS
     Dosage: WEEKLY
  3. FOLIC ACID [Concomitant]
     Indication: DRUG THERAPY
  4. FOLIC ACID [Concomitant]
  5. VICKS [Concomitant]
     Indication: PRODUCT USED FOR UNKNOWN INDICATION
     Route: 061
  6. INFLUENZA [Concomitant]
     Indication: PRODUCT USED FOR UNKNOWN INDICATION
     Dates: start: 20131007, end: 20131007

REACTIONS (9)
  - Stomatitis [Not Recovered/Not Resolved]
  - Injection site pain [Not Recovered/Not Resolved]
  - Malaise [Unknown]
  - Fatigue [Not Recovered/Not Resolved]
  - Paranasal sinus hypersecretion [Unknown]
  - Dry throat [Unknown]
  - Oropharyngeal pain [Unknown]
  - Injection site haemorrhage [Not Recovered/Not Resolved]
  - Drug dose omission [Unknown]
